FAERS Safety Report 13503230 (Version 1)
Quarter: 2017Q2

REPORT INFORMATION
  Report Type: Spontaneous
  Country: US (occurrence: US)
  Receive Date: 20170502
  Receipt Date: 20170502
  Transmission Date: 20170830
  Serious: No
  Sender: FDA-Public Use
  Company Number: US-PFIZER INC-2017188190

PATIENT
  Age: 50 Year
  Sex: Female

DRUGS (1)
  1. PREMARIN [Suspect]
     Active Substance: ESTROGENS, CONJUGATED
     Dosage: UNK, 1X/DAY (1 TUBE, APPLY TO URETHRA EVERY HS)
     Route: 066

REACTIONS (2)
  - Urinary tract infection [Unknown]
  - Urethritis [Unknown]

NARRATIVE: CASE EVENT DATE: 20170307
